FAERS Safety Report 14703540 (Version 2)
Quarter: 2018Q2

REPORT INFORMATION
  Report Type: Spontaneous
  Country: US (occurrence: US)
  Receive Date: 20180402
  Receipt Date: 20180616
  Transmission Date: 20180711
  Serious: No
  Sender: FDA-Public Use
  Company Number: US-009507513-1803USA008682

PATIENT
  Sex: Male

DRUGS (3)
  1. INTRON A [Suspect]
     Active Substance: INTERFERON ALFA-2B
     Dosage: 7.5 MILLION IU, QW
     Route: 058
     Dates: start: 20180206
  2. POMALYST [Concomitant]
     Active Substance: POMALIDOMIDE
  3. INTRON A [Suspect]
     Active Substance: INTERFERON ALFA-2B
     Indication: KAPOSI^S SARCOMA
     Dosage: 7.5 MILLION IU, QW
     Route: 058
     Dates: start: 20180205

REACTIONS (2)
  - Fatigue [Unknown]
  - Rash [Unknown]

NARRATIVE: CASE EVENT DATE: 2018
